FAERS Safety Report 13766742 (Version 1)
Quarter: 2017Q3

REPORT INFORMATION
  Report Type: Spontaneous
  Country: FR (occurrence: FR)
  Receive Date: 20170719
  Receipt Date: 20170719
  Transmission Date: 20171127
  Serious: Yes (Other)
  Sender: FDA-Public Use
  Company Number: FR-PFIZER INC-2739857

PATIENT
  Age: 47 Year
  Sex: Female

DRUGS (6)
  1. ZOPHREN /00955301/ [Concomitant]
     Active Substance: ONDANSETRON
     Indication: PREMEDICATION
     Dosage: 1 DF, 1 DAY
     Route: 041
     Dates: start: 20140606
  2. PACLITAXEL KABI [Concomitant]
     Active Substance: PACLITAXEL
     Indication: NEUROENDOCRINE CARCINOMA
     Dosage: 165 MG, 1 DAY
     Route: 041
     Dates: start: 20140606
  3. AZANTAC [Concomitant]
     Active Substance: RANITIDINE HYDROCHLORIDE
     Indication: PREMEDICATION
     Dosage: 1 DF, 1 DAY
     Route: 042
     Dates: start: 20140606
  4. POLARAMINE [Concomitant]
     Active Substance: DEXCHLORPHENIRAMINE MALEATE
     Indication: PREMEDICATION
     Dosage: 1 DAY
     Route: 042
     Dates: start: 20140606
  5. CARBOPLATIN. [Suspect]
     Active Substance: CARBOPLATIN
     Indication: PRODUCT USED FOR UNKNOWN INDICATION
     Dosage: 420 MG, 1 DAY
     Route: 041
     Dates: start: 20140606
  6. METHYLPREDNISOLONE MERCK [Concomitant]
     Active Substance: METHYLPREDNISOLONE
     Indication: PREMEDICATION
     Dosage: 1 DF, 1 DAY
     Route: 041
     Dates: start: 20140606

REACTIONS (11)
  - Malaise [Unknown]
  - Dysuria [Unknown]
  - Burning sensation [Recovered/Resolved]
  - Oxygen saturation decreased [Recovered/Resolved]
  - Dyspnoea [Recovered/Resolved]
  - Rash [Unknown]
  - Erythema [Unknown]
  - Blood pressure decreased [Recovered/Resolved]
  - Infusion related reaction [Recovered/Resolved]
  - Throat irritation [Unknown]
  - Shock [Unknown]

NARRATIVE: CASE EVENT DATE: 20140606
